FAERS Safety Report 12141042 (Version 1)
Quarter: 2016Q1

REPORT INFORMATION
  Report Type: Spontaneous
  Country: US (occurrence: None)
  Receive Date: 20160302
  Receipt Date: 20160302
  Transmission Date: 20160526
  Serious: Yes (Other)
  Sender: FDA-Public Use
  Company Number: None

PATIENT
  Age: 72 Year
  Sex: Male
  Weight: 76.2 kg

DRUGS (19)
  1. CORTISONE [Concomitant]
     Active Substance: CORTISONE\HYDROCORTISONE
  2. CREON [Concomitant]
     Active Substance: PANCRELIPASE AMYLASE\PANCRELIPASE LIPASE\PANCRELIPASE PROTEASE
  3. LIPITOR [Concomitant]
     Active Substance: ATORVASTATIN CALCIUM
  4. B-100 [Concomitant]
  5. CLONAZEPAM. [Concomitant]
     Active Substance: CLONAZEPAM
     Route: 048
     Dates: start: 20150510, end: 20150512
  6. LAMOTRIGINE. [Concomitant]
     Active Substance: LAMOTRIGINE
  7. GINSENG [Concomitant]
     Active Substance: ASIAN GINSENG
  8. CORTISONE [Concomitant]
     Active Substance: CORTISONE\HYDROCORTISONE
  9. CLONAZEPAM 0.5 MG TABLETS, GENERIC EQUIVALENT FOR KLONOPIN 0.5 MG TABLETS MYLAN [Suspect]
     Active Substance: CLONAZEPAM
     Indication: ANXIETY
     Dosage: 0.5 MG 1, TWICE DAILY, BY MOUTH
     Dates: start: 20150510, end: 20150512
  10. LEVETIRACETAM. [Concomitant]
     Active Substance: LEVETIRACETAM
  11. VITAMIN D [Concomitant]
     Active Substance: CHOLECALCIFEROL
  12. NEFAZODONE HCL [Concomitant]
  13. STEROID [Concomitant]
     Active Substance: UNSPECIFIED INGREDIENT
  14. IMURAN [Concomitant]
     Active Substance: AZATHIOPRINE
  15. IBUPROFEN. [Concomitant]
     Active Substance: IBUPROFEN
  16. TYLENOL WITH CODEINE [Concomitant]
     Active Substance: ACETAMINOPHEN\CODEINE PHOSPHATE
  17. PATANOL [Concomitant]
     Active Substance: OLOPATADINE HYDROCHLORIDE
  18. TESTOSTERONE. [Concomitant]
     Active Substance: TESTOSTERONE
  19. CENTRUM SILVER [Concomitant]
     Active Substance: MINERALS\VITAMINS

REACTIONS (4)
  - Product quality issue [None]
  - Product substitution issue [None]
  - Confusional state [None]
  - Disorientation [None]

NARRATIVE: CASE EVENT DATE: 20150510
